FAERS Safety Report 8905343 (Version 3)
Quarter: 2013Q3

REPORT INFORMATION
  Report Type: Spontaneous
  Country: JP (occurrence: JP)
  Receive Date: 20121112
  Receipt Date: 20130701
  Transmission Date: 20140515
  Serious: Yes (Death)
  Sender: FDA-Public Use
  Company Number: JP-BRISTOL-MYERS SQUIBB COMPANY-17111907

PATIENT
  Age: 10 Year
  Sex: Male
  Weight: 50 kg

DRUGS (8)
  1. ABILIFY TABS [Suspect]
     Indication: IRRITABILITY
     Dosage: 19MAY2010-29SEP2011?06MAR2012-OCT2012
     Route: 048
     Dates: start: 20100519
  2. ABILIFY TABS [Suspect]
     Indication: AUTISM SPECTRUM DISORDER
     Dosage: 19MAY2010-29SEP2011?06MAR2012-OCT2012
     Route: 048
     Dates: start: 20100519
  3. ORAP [Suspect]
     Indication: HYPERPHAGIA
     Dosage: 13APR-17MAY2012?18MAY2012-OCT2012?TABLET.DOSE RAISED TO 3MG
     Route: 048
     Dates: start: 20120413
  4. ORAP [Suspect]
     Indication: SEDATION
     Dosage: 13APR-17MAY2012?18MAY2012-OCT2012?TABLET.DOSE RAISED TO 3MG
     Route: 048
     Dates: start: 20120413
  5. ZOLOFT [Suspect]
     Indication: ANXIETY
     Dosage: TABS?14SEP-16OCT2012
     Route: 048
     Dates: start: 20120914, end: 201210
  6. ZOLOFT [Suspect]
     Indication: INCONTINENCE
     Dosage: TABS?14SEP-16OCT2012
     Route: 048
     Dates: start: 20120914, end: 201210
  7. RISPERDAL [Suspect]
     Indication: SEDATION
     Dosage: ORODISPERSIBLE TABS
     Route: 048
     Dates: start: 20110309, end: 20110929
  8. ZYPREXA [Suspect]
     Indication: SEDATION
     Route: 048
     Dates: start: 20110404, end: 20110929

REACTIONS (1)
  - Death [Fatal]
